FAERS Safety Report 4477206-9 (Version None)
Quarter: 2004Q4

REPORT INFORMATION
  Report Type: 
  Country: None (occurrence: None)
  Receive Date: 20041013
  Receipt Date: 20040917
  Transmission Date: 20050328
  Serious: Yes (Death)
  Sender: FDA-Public Use
  Company Number: RB-963-2004

PATIENT
  Sex: Female

DRUGS (1)
  1. BUPRENORPHINE HCL [Suspect]
     Indication: DRUG DEPENDENCE

REACTIONS (6)
  - DRUG EXPOSURE DURING PREGNANCY [None]
  - FOETAL DISORDER [None]
  - INTRA-UTERINE DEATH [None]
  - NECROSIS [None]
  - PRE-ECLAMPSIA [None]
  - PREGNANCY [None]
